FAERS Safety Report 5484227-6 (Version None)
Quarter: 2007Q4

REPORT INFORMATION
  Report Type: 
  Country: None (occurrence: None)
  Receive Date: 20071012
  Receipt Date: 20071003
  Transmission Date: 20080405
  Serious: Yes (Hospitalization, Other)
  Sender: FDA-Public Use
  Company Number: US-ABBOTT-07P-163-0419474-00

PATIENT
  Sex: Female
  Weight: 109 kg

DRUGS (2)
  1. HUMIRA [Suspect]
     Indication: PSORIATIC ARTHROPATHY
     Route: 058
     Dates: start: 20061030, end: 20070401
  2. MULTIPLE UNSPECIFIED MEDICATIONS [Concomitant]
     Indication: DRUG USE FOR UNKNOWN INDICATION

REACTIONS (6)
  - AMNESIA [None]
  - ARRHYTHMIA [None]
  - DYSPNOEA [None]
  - MULTI-ORGAN FAILURE [None]
  - PSORIATIC ARTHROPATHY [None]
  - PULMONARY FUNCTION TEST DECREASED [None]
